FAERS Safety Report 10299365 (Version 1)
Quarter: 2014Q3

REPORT INFORMATION
  Report Type: Spontaneous
  Country: JP (occurrence: JP)
  Receive Date: 20140711
  Receipt Date: 20140711
  Transmission Date: 20150326
  Serious: Yes (Other)
  Sender: FDA-Public Use
  Company Number: PHHY2014JP084301

PATIENT
  Sex: Female

DRUGS (4)
  1. RITODRINE [Suspect]
     Active Substance: RITODRINE
     Route: 064
  2. EPHEDRINE [Suspect]
     Active Substance: EPHEDRINE
     Route: 064
  3. BETAMETHASONE [Suspect]
     Active Substance: BETAMETHASONE
     Route: 064
  4. ANESTHETICS [Suspect]
     Active Substance: UNSPECIFIED INGREDIENT
     Route: 064

REACTIONS (3)
  - Premature baby [Unknown]
  - Low birth weight baby [Unknown]
  - Foetal exposure during pregnancy [Unknown]
